FAERS Safety Report 20368384 (Version 2)
Quarter: 2022Q1

REPORT INFORMATION
  Report Type: Spontaneous
  Country: ES (occurrence: ES)
  Receive Date: 20220124
  Receipt Date: 20220208
  Transmission Date: 20220423
  Serious: Yes (Hospitalization)
  Sender: FDA-Public Use
  Company Number: ES-RISINGPHARMA-ES-2022RISLIT00026

PATIENT
  Age: 52 Year
  Sex: Female

DRUGS (1)
  1. ACETAMINOPHEN [Suspect]
     Active Substance: ACETAMINOPHEN
     Indication: Product used for unknown indication
     Route: 048

REACTIONS (7)
  - Blood lactic acid increased [Unknown]
  - Acidosis [Unknown]
  - Discomfort [Unknown]
  - Toxicity to various agents [Recovering/Resolving]
  - Overdose [Recovering/Resolving]
  - Hepatic enzyme increased [Recovering/Resolving]
  - Nausea [Unknown]
